FAERS Safety Report 17122890 (Version 1)
Quarter: 2019Q4

REPORT INFORMATION
  Report Type: Spontaneous
  Country: US (occurrence: US)
  Receive Date: 20191114
  Receipt Date: 20191114
  Transmission Date: 20200122
  Serious: Yes (Hospitalization)
  Sender: FDA-Public Use
  Company Number: None

PATIENT
  Sex: Male

DRUGS (2)
  1. HUMIRA [Suspect]
     Active Substance: ADALIMUMAB
     Indication: HIDRADENITIS
     Dosage: ?          OTHER DOSE:40/0.4 MG/ML; Q4WKS SQ?
     Route: 058
     Dates: start: 20190418
  2. POLYMYXIN B/SOL TRIMETHP [Concomitant]

REACTIONS (3)
  - Therapy cessation [None]
  - Surgery [None]
  - Infection [None]
